FAERS Safety Report 25529758 (Version 1)
Quarter: 2025Q3

REPORT INFORMATION
  Report Type: Spontaneous
  Country: GB (occurrence: GB)
  Receive Date: 20250708
  Receipt Date: 20250708
  Transmission Date: 20251021
  Serious: Yes (Hospitalization, Other)
  Sender: GUERBET
  Company Number: None

PATIENT
  Age: 68 Year
  Sex: Female
  Weight: 86 kg

DRUGS (1)
  1. DOTAREM [Suspect]
     Active Substance: GADOTERATE MEGLUMINE
     Indication: Magnetic resonance imaging heart
     Dosage: 26ML BOLUS
     Route: 050
     Dates: start: 20250623, end: 20250623

REACTIONS (7)
  - Lip oedema [Recovered/Resolved]
  - Eye oedema [Recovered/Resolved]
  - Swelling face [Recovered/Resolved]
  - Erythema [Recovered/Resolved]
  - Sneezing [Unknown]
  - Malaise [Unknown]
  - Increased dose administered [Unknown]

NARRATIVE: CASE EVENT DATE: 20250623
